FAERS Safety Report 10344491 (Version 1)
Quarter: 2014Q3

REPORT INFORMATION
  Report Type: Spontaneous
  Country: PT (occurrence: PT)
  Receive Date: 20140728
  Receipt Date: 20140728
  Transmission Date: 20150326
  Serious: Yes (Other)
  Sender: FDA-Public Use
  Company Number: PHHY2014PT090981

PATIENT
  Age: 45 Year
  Sex: Female

DRUGS (3)
  1. PREDNISOLONE. [Suspect]
     Active Substance: PREDNISOLONE
     Dosage: 7.5 MG PER DAY
  2. METHOTREXATE [Suspect]
     Active Substance: METHOTREXATE
  3. DICLOFENAC [Suspect]
     Active Substance: DICLOFENAC
     Dosage: 50 MG, TID

REACTIONS (5)
  - Leukopenia [Unknown]
  - Therapeutic response decreased [Unknown]
  - Glomerulonephritis membranous [Unknown]
  - Proteinuria [Recovered/Resolved]
  - Herpes zoster [Unknown]
